FAERS Safety Report 5446343-4 (Version None)
Quarter: 2007Q3

REPORT INFORMATION
  Report Type: 
  Country: None (occurrence: None)
  Receive Date: 20070907
  Receipt Date: 20070830
  Transmission Date: 20080115
  Serious: Yes (Disabling)
  Sender: FDA-Public Use
  Company Number: A0677750A

PATIENT
  Age: 62 Year
  Sex: Female

DRUGS (8)
  1. LEUKERAN [Suspect]
     Indication: LYMPHOMA
     Dosage: 12MG CYCLIC
     Route: 048
  2. BENAZEPRIL HYDROCHLORIDE [Concomitant]
  3. PREDNISONE [Concomitant]
  4. COUMADIN [Concomitant]
  5. LOVASTATIN [Concomitant]
  6. ZYRTEC [Concomitant]
  7. HYDROXYZINE [Concomitant]
  8. BISOPROLOL [Concomitant]

REACTIONS (3)
  - PYODERMA GANGRENOSUM [None]
  - SKIN LESION [None]
  - URTICARIA [None]
